FAERS Safety Report 6799055-9 (Version None)
Quarter: 2010Q2

REPORT INFORMATION
  Report Type: 
  Country: None (occurrence: None)
  Receive Date: 20100623
  Receipt Date: 20100614
  Transmission Date: 20101027
  Serious: Yes (Other)
  Sender: FDA-Public Use
  Company Number: 2010SP027234

PATIENT
  Age: 17 Year
  Sex: Female

DRUGS (2)
  1. IMPLANON [Suspect]
     Indication: DRUG USE FOR UNKNOWN INDICATION
     Dosage: 1 DF; SC
     Route: 058
     Dates: start: 20100219, end: 20100514
  2. ALPRAZOLAM (CON.) [Concomitant]

REACTIONS (4)
  - CONVULSION [None]
  - MENTAL DISORDER [None]
  - STRESS [None]
  - VAGINAL HAEMORRHAGE [None]
